FAERS Safety Report 8827849 (Version 1)
Quarter: 2012Q4

REPORT INFORMATION
  Report Type: 
  Country: ES (occurrence: ES)
  Receive Date: 20121008
  Receipt Date: 20121008
  Transmission Date: 20130627
  Serious: Yes (Other)
  Sender: FDA-Public Use
  Company Number: ES-JNJFOC-20121003681

PATIENT
  Age: 39 Year
  Sex: Female

DRUGS (3)
  1. PALEXIA [Suspect]
     Indication: PAIN
     Route: 048
  2. PALEXIA [Suspect]
     Indication: PAIN
     Route: 048
     Dates: start: 20120126
  3. TRAMADOL [Concomitant]
     Indication: PAIN
     Route: 065

REACTIONS (2)
  - Depression [Not Recovered/Not Resolved]
  - Affect lability [Not Recovered/Not Resolved]
